FAERS Safety Report 17632319 (Version 1)
Quarter: 2020Q2

REPORT INFORMATION
  Report Type: Spontaneous
  Country: CA (occurrence: CA)
  Receive Date: 20200406
  Receipt Date: 20200406
  Transmission Date: 20200713
  Serious: Yes (Hospitalization)
  Sender: FDA-Public Use
  Company Number: NVSC2020CA090056

PATIENT
  Age: 25 Year
  Sex: Female
  Weight: 55 kg

DRUGS (3)
  1. HYOSCINE BUTYLBROMIDE [Suspect]
     Active Substance: BUTYLSCOPOLAMINE BROMIDE
     Indication: MAGNETIC RESONANCE IMAGING
     Dosage: UNK, ONCE/SINGLE
     Route: 042
  2. GADOVIST [Suspect]
     Active Substance: GADOBUTROL
     Indication: MAGNETIC RESONANCE IMAGING
     Dosage: UNK UNK, ONCE/SINGLE
     Route: 042
  3. HYOSCINE BUTYLBROMIDE INJECTION SANDOZ STANDARD [Suspect]
     Active Substance: BUTYLSCOPOLAMINE BROMIDE
     Indication: MAGNETIC RESONANCE IMAGING
     Dosage: UNK UNK, ONCE/SINGLE
     Route: 042

REACTIONS (3)
  - Dyspnoea [Unknown]
  - Feeling hot [Unknown]
  - Urticaria [Unknown]
